FAERS Safety Report 15478156 (Version 2)
Quarter: 2018Q4

REPORT INFORMATION
  Report Type: Spontaneous
  Country: JP (occurrence: JP)
  Receive Date: 20181009
  Receipt Date: 20181009
  Transmission Date: 20190205
  Serious: Yes (Other)
  Sender: FDA-Public Use
  Company Number: PHHY2018JP113410

PATIENT
  Age: 74 Year
  Sex: Female

DRUGS (4)
  1. ALFACALCIDOL [Concomitant]
     Active Substance: ALFACALCIDOL
     Indication: TEMPORAL ARTERITIS
     Route: 065
  2. PREDNISOLONE. [Suspect]
     Active Substance: PREDNISOLONE
     Indication: TEMPORAL ARTERITIS
     Dosage: 45 MG, UNK
     Route: 048
  3. VOGLIBOSE [Suspect]
     Active Substance: VOGLIBOSE
     Indication: TEMPORAL ARTERITIS
     Route: 065
  4. ESOMEPRAZOLE. [Concomitant]
     Active Substance: ESOMEPRAZOLE MAGNESIUM
     Indication: TEMPORAL ARTERITIS
     Route: 065

REACTIONS (8)
  - Gastritis erosive [Unknown]
  - Pneumoperitoneum [Recovering/Resolving]
  - Pneumatosis intestinalis [Recovering/Resolving]
  - Colitis [Unknown]
  - Subcutaneous emphysema [Recovering/Resolving]
  - Pneumomediastinum [Recovering/Resolving]
  - Abdominal distension [Unknown]
  - Gastrooesophageal reflux disease [Unknown]
